FAERS Safety Report 22872772 (Version 3)
Quarter: 2023Q4

REPORT INFORMATION
  Report Type: Report from Study
  Country: FR (occurrence: None)
  Receive Date: 20230828
  Receipt Date: 20231012
  Transmission Date: 20240110
  Serious: Yes (Hospitalization)
  Sender: FDA-Public Use
  Company Number: FR-ROCHE-3411182

PATIENT
  Age: 72 Year
  Sex: Female
  Weight: 60.5 kg

DRUGS (8)
  1. VENETOCLAX [Suspect]
     Active Substance: VENETOCLAX
     Indication: Chronic lymphocytic leukaemia
     Route: 048
     Dates: start: 20220830, end: 20230321
  2. VENETOCLAX [Suspect]
     Active Substance: VENETOCLAX
     Dosage: ON 08/AUG/2023, HE RECEIVED LAST DOSE OF VENETOCLAX PRIOR TO AE.
     Route: 048
     Dates: start: 20230725
  3. RITUXIMAB [Suspect]
     Active Substance: RITUXIMAB
     Indication: Product used for unknown indication
     Dosage: ON 28/FEB/2023, SHE RECEIVED MOST RECENT DOSE OF RITUXIMAB PRIOR TO SAE.
     Route: 041
     Dates: start: 20221005
  4. ATOVAQUONE [Concomitant]
     Active Substance: ATOVAQUONE
     Dates: start: 20230322
  5. PROPRANOLOL [Concomitant]
     Active Substance: PROPRANOLOL HYDROCHLORIDE
     Dates: start: 201802
  6. VALACYCLOVIR HYDROCHLORIDE [Concomitant]
     Active Substance: VALACYCLOVIR HYDROCHLORIDE
     Dates: start: 20221118
  7. AMOXICILLIN [Concomitant]
     Active Substance: AMOXICILLIN
     Dates: start: 20230809, end: 20230811
  8. PEGFILGRASTIM [Concomitant]
     Active Substance: PEGFILGRASTIM

REACTIONS (1)
  - Pneumonia mycoplasmal [Not Recovered/Not Resolved]

NARRATIVE: CASE EVENT DATE: 20230812
